FAERS Safety Report 5242269-X (Version None)
Quarter: 2007Q1

REPORT INFORMATION
  Report Type: 
  Country: None (occurrence: None)
  Receive Date: 20070221
  Receipt Date: 20070209
  Transmission Date: 20070707
  Serious: Yes (Life-Threatening, Hospitalization)
  Sender: FDA-Public Use
  Company Number: FR-JNJFOC-20070202600

PATIENT
  Age: 51 Year
  Sex: Female
  Weight: 52 kg

DRUGS (6)
  1. REMICADE [Suspect]
     Indication: RHEUMATOID ARTHRITIS
     Route: 042
  2. METHOTREXATE [Suspect]
     Indication: RHEUMATOID ARTHRITIS
     Route: 030
  3. CHRONO INDOCID [Concomitant]
     Route: 048
  4. TRAMADOL HCL [Concomitant]
     Route: 048
  5. CORTANCYL [Concomitant]
     Route: 048
  6. SPECIAFOLDINE [Concomitant]
     Route: 048

REACTIONS (2)
  - ANAL CANCER [None]
  - RHEUMATOID ARTHRITIS [None]
